FAERS Safety Report 13387575 (Version 1)
Quarter: 2017Q1

REPORT INFORMATION
  Report Type: Report from Study
  Country: US (occurrence: US)
  Receive Date: 20170330
  Receipt Date: 20170330
  Transmission Date: 20170429
  Serious: Yes (Hospitalization, Other)
  Sender: FDA-Public Use
  Company Number: US-ROCHE-1857408

PATIENT
  Sex: Male

DRUGS (2)
  1. GAZYVA [Concomitant]
     Active Substance: OBINUTUZUMAB
     Route: 065
  2. RITUXAN [Suspect]
     Active Substance: RITUXIMAB
     Indication: B-CELL LYMPHOMA
     Route: 042

REACTIONS (15)
  - Blood pressure increased [Unknown]
  - Retching [Unknown]
  - Dysstasia [Unknown]
  - Dyspnoea [Unknown]
  - Heart rate increased [Unknown]
  - Vomiting [Unknown]
  - Infusion related reaction [Unknown]
  - Chills [Unknown]
  - Seizure [Unknown]
  - Asthma [Unknown]
  - Ill-defined disorder [Unknown]
  - Body temperature increased [Unknown]
  - Blood count abnormal [Unknown]
  - Tremor [Unknown]
  - Apparent death [Recovered/Resolved]
